FAERS Safety Report 22190977 (Version 3)
Quarter: 2023Q2

REPORT INFORMATION
  Report Type: Spontaneous
  Country: JP (occurrence: JP)
  Receive Date: 20230410
  Receipt Date: 20230512
  Transmission Date: 20230721
  Serious: Yes (Death, Hospitalization, Other)
  Sender: FDA-Public Use
  Company Number: JP-GLAXOSMITHKLINE-JP2023JPN050985

PATIENT

DRUGS (11)
  1. DAPRODUSTAT [Suspect]
     Active Substance: DAPRODUSTAT
     Indication: Nephrogenic anaemia
     Dosage: 2 MG
     Route: 048
     Dates: start: 202203, end: 20230304
  2. ASPIRIN ENTERIC-COATED TABLET [Concomitant]
     Dosage: 100 MG
     Dates: end: 20230304
  3. SAMSCA [Concomitant]
     Active Substance: TOLVAPTAN
     Dosage: 3.75 MG
     Dates: end: 20230304
  4. FUROSEMIDE [Concomitant]
     Active Substance: FUROSEMIDE
     Dosage: 40 MG
     Dates: end: 20230304
  5. NEXIUM [Concomitant]
     Active Substance: ESOMEPRAZOLE MAGNESIUM
     Dosage: 20 MG
     Dates: end: 20230304
  6. FEBUXOSTAT [Concomitant]
     Active Substance: FEBUXOSTAT
     Dosage: 10 MG
     Dates: end: 20230304
  7. URAPIDIL [Concomitant]
     Active Substance: URAPIDIL
     Dosage: 60 MG, BID
     Dates: end: 20230304
  8. DIETARY SUPPLEMENT\PROBIOTICS [Concomitant]
     Active Substance: DIETARY SUPPLEMENT\PROBIOTICS NOS
     Dosage: 3 DF ? 3 TIMES
     Dates: end: 20230304
  9. DAYVIGO [Concomitant]
     Active Substance: LEMBOREXANT
     Dosage: 5 MG
     Dates: end: 20230304
  10. RAMELTEON [Concomitant]
     Active Substance: RAMELTEON
     Dosage: 8 MG
  11. SODIUM PICOSULFATE [Concomitant]
     Active Substance: SODIUM PICOSULFATE
     Dosage: 7.5 MG
     Dates: end: 20230304

REACTIONS (4)
  - Ileus [Unknown]
  - Hypoglycaemia [Unknown]
  - Pneumonia aspiration [Fatal]
  - Pneumonia [Fatal]

NARRATIVE: CASE EVENT DATE: 20230323
